FAERS Safety Report 13287969 (Version 1)
Quarter: 2017Q1

REPORT INFORMATION
  Report Type: Spontaneous
  Country: SE (occurrence: SE)
  Receive Date: 20170302
  Receipt Date: 20170302
  Transmission Date: 20170428
  Serious: Yes (Other)
  Sender: FDA-Public Use
  Company Number: SE-TEVA-741824ISR

PATIENT
  Age: 59 Year
  Sex: Male

DRUGS (1)
  1. METOPROLOL TEVA [Suspect]
     Active Substance: METOPROLOL
     Dates: start: 20170123

REACTIONS (5)
  - Arrhythmia [Unknown]
  - Product substitution issue [Unknown]
  - Drug ineffective [Unknown]
  - Incorrect route of drug administration [Unknown]
  - Wrong technique in product usage process [Unknown]
